FAERS Safety Report 6626246-X (Version None)
Quarter: 2010Q1

REPORT INFORMATION
  Report Type: 
  Country: None (occurrence: None)
  Receive Date: 20100310
  Receipt Date: 20100225
  Transmission Date: 20100710
  Serious: Yes (Other)
  Sender: FDA-Public Use
  Company Number: GB-GENENTECH-295718

PATIENT
  Age: 55 Year
  Sex: Male

DRUGS (1)
  1. LUCENTIS [Suspect]
     Indication: MACULAR DEGENERATION
     Dosage: UNK
     Route: 031

REACTIONS (4)
  - ASTHENIA [None]
  - CONFUSIONAL STATE [None]
  - MALAISE [None]
  - TRANSIENT ISCHAEMIC ATTACK [None]
